FAERS Safety Report 6803929-X (Version None)
Quarter: 2010Q2

REPORT INFORMATION
  Report Type: 
  Country: None (occurrence: None)
  Receive Date: 20100628
  Receipt Date: 20060509
  Transmission Date: 20101027
  Serious: No
  Sender: FDA-Public Use
  Company Number: US-PFIZER INC-2006062400

PATIENT

DRUGS (1)
  1. SUTENT [Suspect]
     Indication: NEOPLASM MALIGNANT
     Dosage: CYCLIC QD 4WEEKS ON, 2WEEKS OFF
     Route: 065
     Dates: start: 20060401

REACTIONS (2)
  - ORAL PAIN [None]
  - RASH [None]
